FAERS Safety Report 19012133 (Version 1)
Quarter: 2021Q1

REPORT INFORMATION
  Report Type: Spontaneous
  Country: US (occurrence: US)
  Receive Date: 20210315
  Receipt Date: 20210315
  Transmission Date: 20210420
  Serious: Yes (Hospitalization, Other)
  Sender: FDA-Public Use
  Company Number: US-ASTRAZENECA-2021A102305

PATIENT
  Age: 66 Year
  Sex: Female
  Weight: 96.7 kg

DRUGS (14)
  1. LEXAPRO [Concomitant]
     Active Substance: ESCITALOPRAM OXALATE
     Indication: DEPRESSION
     Dates: start: 2017
  2. PF?06482077;PLACEBO [Suspect]
     Active Substance: INVESTIGATIONAL PRODUCT
     Indication: IMMUNISATION
     Dosage: 10.25 AT LEFT DELTOID AT SINGLE DOSE
     Route: 030
     Dates: start: 20201130, end: 20201130
  3. LISINOPRIL AND HYDROCHLOROTHIAZIDE [Suspect]
     Active Substance: HYDROCHLOROTHIAZIDE\LISINOPRIL
     Indication: HYPERTENSION
     Dosage: EVERY 1 DAY(S) HYDROCHLOROTHIAZIDE 20 MG/LISINOPRIL 12.5 MG
     Route: 048
  4. OMEPRAZOLE. [Suspect]
     Active Substance: OMEPRAZOLE
     Indication: GASTROOESOPHAGEAL REFLUX DISEASE
     Route: 048
     Dates: start: 2019
  5. LEVOTHYROXINE. [Concomitant]
     Active Substance: LEVOTHYROXINE
     Indication: HYPOTHYROIDISM
     Dates: start: 2012
  6. METOPROLOL. [Suspect]
     Active Substance: METOPROLOL
     Indication: HYPERTENSION
     Route: 048
     Dates: start: 2005, end: 20201216
  7. AMLODIPINE BESILATE [Suspect]
     Active Substance: AMLODIPINE BESYLATE
     Indication: HYPERTENSION
     Route: 048
     Dates: start: 2016
  8. DOXEPIN [Concomitant]
     Active Substance: DOXEPIN
     Indication: INSOMNIA
     Dates: start: 202007
  9. LISINOPRIL AND HYDROCHLOROTHIAZIDE [Suspect]
     Active Substance: HYDROCHLOROTHIAZIDE\LISINOPRIL
     Indication: HYPERTENSION
     Dosage: EVERY 2 DAY(S) HYDROCHLOROTHIAZIDE 20 MG/LISINOPRIL 12.5 MG
     Route: 048
     Dates: start: 2005, end: 20201216
  10. CRESTOR [Suspect]
     Active Substance: ROSUVASTATIN CALCIUM
     Indication: HYPERLIPIDAEMIA
     Route: 048
     Dates: start: 2019
  11. ASPIRIN. [Concomitant]
     Active Substance: ASPIRIN
     Indication: CARDIOVASCULAR EVENT PROPHYLAXIS
     Dates: start: 2016
  12. LOVAZA [Concomitant]
     Active Substance: OMEGA-3-ACID ETHYL ESTERS
     Indication: HYPERLIPIDAEMIA
     Dates: start: 2019
  13. FLUAD QUADRIVALENT INFLUENZA VACCINE [Concomitant]
     Indication: PRODUCT USED FOR UNKNOWN INDICATION
     Dosage: AT RIGHT DELTOID
     Route: 030
     Dates: start: 20201029, end: 20201029
  14. PF?06482077;PLACEBO [Suspect]
     Active Substance: INVESTIGATIONAL PRODUCT
     Indication: IMMUNISATION
     Dosage: 9.32 AT LEFT DELTOID AT SINGLE DOSE
     Route: 030
     Dates: start: 20201029, end: 20201029

REACTIONS (7)
  - Skull fractured base [Unknown]
  - Facial bones fracture [Unknown]
  - Atrioventricular block first degree [Unknown]
  - Head injury [Unknown]
  - Syncope [Recovered/Resolved]
  - Sinus bradycardia [Unknown]
  - Fall [Unknown]

NARRATIVE: CASE EVENT DATE: 20201216
